FAERS Safety Report 8587197-7 (Version None)
Quarter: 2012Q3

REPORT INFORMATION
  Report Type: 
  Country: None (occurrence: None)
  Receive Date: 20120810
  Receipt Date: 20110913
  Transmission Date: 20120928
  Serious: Yes (Other)
  Sender: FDA-Public Use
  Company Number: US-ASTRAZENECA-2011SE05264

PATIENT
  Age: 78 Year
  Sex: Female

DRUGS (2)
  1. FASLODEX [Suspect]
     Indication: BREAST CANCER METASTATIC
     Route: 030
     Dates: start: 20110101
  2. ARIMIDEX [Suspect]
     Indication: BREAST CANCER
     Route: 048

REACTIONS (17)
  - INJECTION SITE PAIN [None]
  - THROMBOSIS [None]
  - RED BLOOD CELL COUNT INCREASED [None]
  - PAIN IN EXTREMITY [None]
  - HOT FLUSH [None]
  - ALOPECIA [None]
  - INJECTION SITE HAEMORRHAGE [None]
  - GAIT DISTURBANCE [None]
  - ERYTHEMA [None]
  - WHITE BLOOD CELL COUNT INCREASED [None]
  - FEELING ABNORMAL [None]
  - METASTASES TO LYMPH NODES [None]
  - HAEMOGLOBIN INCREASED [None]
  - PLATELET COUNT INCREASED [None]
  - DIZZINESS [None]
  - WRONG TECHNIQUE IN DRUG USAGE PROCESS [None]
  - BREAST CANCER RECURRENT [None]
